FAERS Safety Report 17468807 (Version 1)
Quarter: 2020Q1

REPORT INFORMATION
  Report Type: Spontaneous
  Country: US (occurrence: US)
  Receive Date: 20200227
  Receipt Date: 20200227
  Transmission Date: 20200409
  Serious: Yes (Death)
  Sender: FDA-Public Use
  Company Number: None

PATIENT
  Age: 65 Year
  Sex: Male
  Weight: 78.6 kg

DRUGS (1)
  1. ABEMACICLIB [Suspect]
     Active Substance: ABEMACICLIB
     Indication: GLIOBLASTOMA
     Route: 048
     Dates: start: 20190829, end: 20200105

REACTIONS (7)
  - Lethargy [None]
  - Fatigue [None]
  - Dehydration [None]
  - Arrhythmia [None]
  - Glioblastoma [None]
  - Diarrhoea [None]
  - Supraventricular tachycardia [None]

NARRATIVE: CASE EVENT DATE: 20200115
